FAERS Safety Report 6868364 (Version 11)
Quarter: 2012Q4

REPORT INFORMATION
  Report Type: 
  Country: US (occurrence: US)
  Receive Date: 20081229
  Receipt Date: 20121205
  Transmission Date: 20130627
  Serious: Yes (Hospitalization, Other)
  Sender: FDA-Public Use
  Company Number: US-JNJFOC-20081205871

PATIENT
  Sex: Male
  Weight: 99.34 kg

DRUGS (9)
  1. RISPERDAL [Suspect]
     Indication: DEPRESSION
     Route: 048
  2. RISPERDAL [Suspect]
     Indication: ANXIETY
     Route: 048
  3. RISPERDAL [Suspect]
     Indication: SCHIZOPHRENIA, PARANOID TYPE
     Route: 048
  4. SEROQUEL [Suspect]
     Indication: DEPRESSION
     Route: 065
  5. SEROQUEL [Suspect]
     Indication: ANXIETY
     Route: 065
  6. SEROQUEL [Suspect]
     Indication: SCHIZOPHRENIA, PARANOID TYPE
     Route: 065
  7. ZYPREXA [Suspect]
     Indication: DEPRESSION
     Route: 065
  8. ZYPREXA [Suspect]
     Indication: ANXIETY
     Route: 065
  9. ZYPREXA [Suspect]
     Indication: SCHIZOPHRENIA, PARANOID TYPE
     Route: 065

REACTIONS (2)
  - Insulin-requiring type 2 diabetes mellitus [Not Recovered/Not Resolved]
  - Insomnia [Unknown]
